FAERS Safety Report 9761247 (Version 1)
Quarter: 2013Q4

REPORT INFORMATION
  Report Type: Spontaneous
  Country: None (occurrence: US)
  Receive Date: 20131216
  Receipt Date: 20131216
  Transmission Date: 20140711
  Serious: No
  Sender: FDA-Public Use
  Company Number: US-BAXTER-2005BH001099

PATIENT
  Sex: 0

DRUGS (1)
  1. GLUCOSE, MONOHYDRATE [Suspect]
     Indication: PARENTERAL NUTRITION
     Route: 042

REACTIONS (1)
  - Blood glucose increased [Recovered/Resolved]
